FAERS Safety Report 6570134-4 (Version None)
Quarter: 2010Q1

REPORT INFORMATION
  Report Type: 
  Country: None (occurrence: None)
  Receive Date: 20100202
  Receipt Date: 20100202
  Transmission Date: 20100710
  Serious: No
  Sender: FDA-Public Use
  Company Number: None

PATIENT
  Age: 34 Year
  Sex: Female
  Weight: 63.05 kg

DRUGS (4)
  1. OCELLA BIRTH CONTROL 3-U .03 MG -28 EACH- TEVA PHARMACEUTICAL USA [Suspect]
     Indication: ACNE
     Dosage: 1 PILL DAILY PO
     Route: 048
     Dates: start: 20080701, end: 20090930
  2. OCELLA BIRTH CONTROL 3-U .03 MG -28 EACH- TEVA PHARMACEUTICAL USA [Suspect]
     Indication: MENSTRUATION IRREGULAR
     Dosage: 1 PILL DAILY PO
     Route: 048
     Dates: start: 20080701, end: 20090930
  3. MECLIZINE [Concomitant]
  4. AUGMENTIN [Concomitant]

REACTIONS (5)
  - ARTHRALGIA [None]
  - MIGRAINE [None]
  - MYELITIS TRANSVERSE [None]
  - PARAESTHESIA [None]
  - POST PROCEDURAL COMPLICATION [None]
